FAERS Safety Report 6821466-3 (Version None)
Quarter: 2010Q3

REPORT INFORMATION
  Report Type: 
  Country: None (occurrence: None)
  Receive Date: 20100707
  Receipt Date: 20081113
  Transmission Date: 20110219
  Serious: No
  Sender: FDA-Public Use
  Company Number: US-PFIZER INC-2008062363

PATIENT
  Sex: Male
  Weight: 87.09 kg

DRUGS (2)
  1. ZOLOFT [Suspect]
     Indication: ANXIETY
     Route: 048
     Dates: start: 20080721
  2. ZOLOFT [Suspect]
     Indication: DEPRESSION

REACTIONS (8)
  - ABDOMINAL DISCOMFORT [None]
  - ABDOMINAL PAIN UPPER [None]
  - AGITATION [None]
  - ANXIETY [None]
  - CONFUSIONAL STATE [None]
  - EYE DISORDER [None]
  - MENTAL DISORDER [None]
  - UNEVALUABLE EVENT [None]
